FAERS Safety Report 4985793-7 (Version None)
Quarter: 2006Q2

REPORT INFORMATION
  Report Type: 
  Country: None (occurrence: None)
  Receive Date: 20060428
  Receipt Date: 20050301
  Transmission Date: 20061013
  Serious: No
  Sender: FDA-Public Use
  Company Number: US-GLAXOSMITHKLINE-A0547788A

PATIENT
  Sex: Female

DRUGS (4)
  1. AMERGE [Suspect]
     Indication: MIGRAINE
     Dosage: 2.5MG VARIABLE DOSE
     Route: 048
     Dates: start: 20010101
  2. WELLBUTRIN SR [Concomitant]
  3. LEXAPRO [Concomitant]
  4. FOSAMAX [Concomitant]

REACTIONS (1)
  - POLLAKIURIA [None]
